FAERS Safety Report 20410485 (Version 1)
Quarter: 2022Q1

REPORT INFORMATION
  Report Type: Spontaneous
  Country: US (occurrence: None)
  Receive Date: 20220131
  Receipt Date: 20220131
  Transmission Date: 20220423
  Serious: Yes (Disabling)
  Sender: FDA-Public Use
  Company Number: None

PATIENT
  Age: 70 Year
  Sex: Male
  Weight: 68.4 kg

DRUGS (4)
  1. POLYETHYLENE GLYCOL 3350 [Suspect]
     Active Substance: POLYETHYLENE GLYCOL 3350
     Indication: Constipation
     Dosage: FREQUENCY : DAILY;?
     Route: 048
  2. SIMVASTATIN [Concomitant]
     Active Substance: SIMVASTATIN
  3. BACTRIM [Concomitant]
     Active Substance: SULFAMETHOXAZOLE\TRIMETHOPRIM
  4. PHENAZOPYRIDINE [Concomitant]
     Active Substance: PHENAZOPYRIDINE

REACTIONS (6)
  - Constipation [None]
  - Incorrect dose administered by product [None]
  - Prostatic pain [None]
  - Device information output issue [None]
  - Muscle spasms [None]
  - Product container issue [None]

NARRATIVE: CASE EVENT DATE: 20220129
